FAERS Safety Report 23521062 (Version 2)
Quarter: 2024Q1

REPORT INFORMATION
  Report Type: Spontaneous
  Country: US (occurrence: US)
  Receive Date: 20240214
  Receipt Date: 20240305
  Transmission Date: 20240409
  Serious: Yes (Other)
  Sender: FDA-Public Use
  Company Number: US-MACLEODS PHARMACEUTICALS US LTD-MAC2024045758

PATIENT

DRUGS (1)
  1. ESCITALOPRAM OXALATE [Suspect]
     Active Substance: ESCITALOPRAM OXALATE
     Indication: Antidepressant therapy
     Dosage: 10 MILLIGRAM (TIME INTERVAL BETWEEN BEGINNING OF DRUG ADMINISTRATION AND START EVENT: 2 DAYS)
     Route: 048

REACTIONS (2)
  - Suicidal ideation [Recovered/Resolved]
  - Condition aggravated [Recovered/Resolved]
